FAERS Safety Report 13560756 (Version 19)
Quarter: 2021Q2

REPORT INFORMATION
  Report Type: Report from Study
  Country: None (occurrence: JP)
  Receive Date: 20170518
  Receipt Date: 20210406
  Transmission Date: 20210716
  Serious: Yes (Hospitalization)
  Sender: FDA-Public Use
  Company Number: JP-ABBVIE-17K-087-1977405-00

PATIENT
  Age: 70 Year
  Sex: Female
  Weight: 49 kg

DRUGS (13)
  1. DUODOPA [Suspect]
     Active Substance: CARBIDOPA\LEVODOPA
     Indication: PARKINSON^S DISEASE
     Dosage: MD: 8 ML, CD: 2.8 ML/HR X 16 HR, ED: 1 ML/UNIT X 1
     Route: 050
     Dates: start: 20170303, end: 20170307
  2. DUODOPA [Suspect]
     Active Substance: CARBIDOPA\LEVODOPA
     Dosage: MD: 9 ML, CD: 2.7 ML/HR X 16 HR, ED: 1 ML/UNIT X 1
     Route: 050
     Dates: start: 20170427, end: 20170501
  3. ROPINIROLE HYDROCHLORIDE. [Concomitant]
     Active Substance: ROPINIROLE HYDROCHLORIDE
     Indication: PRODUCT USED FOR UNKNOWN INDICATION
     Route: 048
     Dates: start: 20170403
  4. DUODOPA [Suspect]
     Active Substance: CARBIDOPA\LEVODOPA
     Dosage: MD: 9 ML, CD: 2.5 ML/HR X 16 HR, ED: 1 ML/UNIT X 1
     Route: 050
     Dates: start: 20170501, end: 20170525
  5. ZOPICLONE [Concomitant]
     Active Substance: ZOPICLONE
     Indication: PRODUCT USED FOR UNKNOWN INDICATION
     Route: 048
  6. DUODOPA [Suspect]
     Active Substance: CARBIDOPA\LEVODOPA
     Dosage: MD: 6 ML, CD: 3.1 ML/HR X 16 HR, ED: 1 ML/UNIT X 1
     Route: 050
     Dates: start: 20170307, end: 20170310
  7. DOPACOL [Concomitant]
     Active Substance: CARBIDOPA\LEVODOPA
     Indication: PRODUCT USED FOR UNKNOWN INDICATION
     Dosage: THE AMOUNT OF LEVODOPA CONVERTED TO 16?HOUR DOSE DURING DAYTIME WAS 400 MG.
     Route: 048
     Dates: start: 200906
  8. DUODOPA [Suspect]
     Active Substance: CARBIDOPA\LEVODOPA
     Dosage: MD: 9 ML, CD: 3.1 ML/HR X 16 HR, ED: 1 ML/UNIT X 1
     Route: 050
     Dates: start: 20170413, end: 20170427
  9. LEVODOPA [Concomitant]
     Active Substance: LEVODOPA
     Indication: PARKINSON^S DISEASE
  10. MOSAPRIDE CITRATE [Concomitant]
     Active Substance: MOSAPRIDE CITRATE
     Indication: PRODUCT USED FOR UNKNOWN INDICATION
     Route: 048
  11. DUODOPA [Suspect]
     Active Substance: CARBIDOPA\LEVODOPA
     Dosage: MD: 9 ML, CD: 3.1 ML/HR X 16 HR, ED: 1 ML/UNIT X 1
     Route: 050
     Dates: start: 20170310, end: 20170413
  12. DUODOPA [Suspect]
     Active Substance: CARBIDOPA\LEVODOPA
     Dosage: MD: 9 ML, CD: 2.7 ML/HR X 16 HR, ED: 1 ML/UNIT X 1, ABOUT A YEAR
     Route: 050
     Dates: start: 20170525
  13. MAGNESIUM OXIDE. [Concomitant]
     Active Substance: MAGNESIUM OXIDE
     Indication: PRODUCT USED FOR UNKNOWN INDICATION
     Route: 048

REACTIONS (19)
  - Stoma site extravasation [Not Recovered/Not Resolved]
  - Dyskinesia [Recovering/Resolving]
  - Constipation [Unknown]
  - Stoma site discharge [Recovered/Resolved]
  - Stoma site inflammation [Recovered/Resolved]
  - Stoma site inflammation [Unknown]
  - Stoma site pain [Recovered/Resolved]
  - Stoma site pain [Unknown]
  - Abdominal pain [Recovered/Resolved]
  - Sudden onset of sleep [Recovered/Resolved]
  - Device issue [Recovered/Resolved]
  - Bezoar [Recovered/Resolved]
  - Dyskinesia [Recovering/Resolving]
  - Loss of consciousness [Recovered/Resolved]
  - Blood glucose decreased [Recovered/Resolved]
  - Thirst [Unknown]
  - Device kink [Unknown]
  - Freezing phenomenon [Unknown]
  - Abdominal pain [Unknown]

NARRATIVE: CASE EVENT DATE: 20170310
